FAERS Safety Report 16237562 (Version 3)
Quarter: 2020Q3

REPORT INFORMATION
  Report Type: Spontaneous
  Country: US (occurrence: US)
  Receive Date: 20190425
  Receipt Date: 20200721
  Transmission Date: 20201102
  Serious: Yes (Other)
  Sender: FDA-Public Use
  Company Number: US-PURDUE-USA-2019-0146936

PATIENT
  Sex: Female

DRUGS (4)
  1. MARIJUANA [Suspect]
     Active Substance: CANNABIS SATIVA SUBSP. INDICA TOP
     Indication: PAIN MANAGEMENT
     Dosage: UNK
     Route: 055
  2. OXYCONTIN [Suspect]
     Active Substance: OXYCODONE HYDROCHLORIDE
     Dosage: 40 MG, TID
     Route: 048
     Dates: end: 201905
  3. OXYCODONE HYDROCHLORIDE (SIMILAR TO NDA 22?272) [Suspect]
     Active Substance: OXYCODONE HYDROCHLORIDE
     Indication: PRODUCT USED FOR UNKNOWN INDICATION
     Route: 048
  4. OXYCONTIN [Suspect]
     Active Substance: OXYCODONE HYDROCHLORIDE
     Indication: PAIN
     Dosage: 80 MG, TID
     Route: 048
     Dates: start: 2001

REACTIONS (15)
  - Ileostomy [Unknown]
  - Pain [Unknown]
  - Weight decreased [Unknown]
  - Dependence [Unknown]
  - Vomiting [Unknown]
  - Off label use [Unknown]
  - Intestinal resection [Unknown]
  - Unevaluable event [Unknown]
  - Colostomy [Unknown]
  - Abdominal abscess [Unknown]
  - Scar [Unknown]
  - Stoma creation [Unknown]
  - Substance abuse [Unknown]
  - Surgery [Unknown]
  - General physical health deterioration [Unknown]
